FAERS Safety Report 24420477 (Version 6)
Quarter: 2025Q1

REPORT INFORMATION
  Report Type: Report from Study
  Country: US (occurrence: US)
  Receive Date: 20241010
  Receipt Date: 20250221
  Transmission Date: 20250409
  Serious: Yes (Hospitalization)
  Sender: ABBVIE
  Company Number: US-ABBVIE-5914817

PATIENT
  Sex: Female

DRUGS (2)
  1. RINVOQ [Suspect]
     Active Substance: UPADACITINIB
     Indication: Rheumatoid arthritis
     Route: 048
     Dates: start: 20230505
  2. RINVOQ [Suspect]
     Active Substance: UPADACITINIB
     Indication: Rheumatoid arthritis
     Route: 048

REACTIONS (9)
  - Rheumatoid arthritis [Unknown]
  - Lymphoedema [Not Recovered/Not Resolved]
  - Skin disorder [Not Recovered/Not Resolved]
  - Cellulitis [Unknown]
  - Peripheral swelling [Unknown]
  - Gait inability [Not Recovered/Not Resolved]
  - Infection [Recovering/Resolving]
  - Norovirus infection [Recovered/Resolved]
  - Skin wound [Unknown]

NARRATIVE: CASE EVENT DATE: 20230505
